FAERS Safety Report 4883470-4 (Version None)
Quarter: 2006Q1

REPORT INFORMATION
  Report Type: 
  Country: None (occurrence: None)
  Receive Date: 20060118
  Receipt Date: 20050228
  Transmission Date: 20060701
  Serious: Yes (Hospitalization, Other)
  Sender: FDA-Public Use
  Company Number: US-MERCK-0503USA00233

PATIENT
  Age: 63 Year
  Sex: Female
  Weight: 86 kg

DRUGS (19)
  1. VIOXX [Suspect]
     Indication: ARTHRITIS
     Route: 048
     Dates: start: 19990101, end: 20040901
  2. ALBUTEROL [Concomitant]
     Route: 065
  3. AMBIEN [Concomitant]
     Route: 065
  4. BISACODYL [Concomitant]
     Route: 065
  5. DICAL D [Concomitant]
     Route: 065
  6. EVISTA [Concomitant]
     Route: 065
  7. FOSAMAX [Concomitant]
     Route: 065
  8. LEVAQUIN [Concomitant]
     Route: 065
  9. LEVOXYL [Concomitant]
     Route: 065
  10. MECLIZINE [Concomitant]
     Route: 065
  11. METOPROLOL [Concomitant]
     Route: 065
  12. NEXIUM [Concomitant]
     Route: 065
  13. NITROSTAT [Concomitant]
     Route: 065
  14. OYST-CAL [Concomitant]
     Route: 065
  15. SINGULAIR [Concomitant]
     Route: 065
  16. TOPROL-XL [Concomitant]
     Route: 065
  17. EXTRA STRENGTH TYLENOL [Concomitant]
     Route: 065
  18. ZOCOR [Concomitant]
     Route: 065
  19. [THERAPY UNSPECIFIED] [Concomitant]
     Route: 065

REACTIONS (3)
  - ANGINA PECTORIS [None]
  - CORONARY ARTERY DISEASE [None]
  - MYOCARDIAL INFARCTION [None]
